FAERS Safety Report 5263066-5 (Version None)
Quarter: 2007Q1

REPORT INFORMATION
  Report Type: 
  Country: None (occurrence: None)
  Receive Date: 20070312
  Receipt Date: 20070228
  Transmission Date: 20070707
  Serious: Yes (Hospitalization, Other)
  Sender: FDA-Public Use
  Company Number: US-PFIZER INC-2005114609

PATIENT
  Sex: Male

DRUGS (5)
  1. NEURONTIN [Suspect]
     Indication: PAIN
     Route: 048
  2. LORTAB [Suspect]
     Indication: PAIN
     Route: 048
  3. LISINOPRIL W/HYDROCHLOROTHIAZIDE [Suspect]
     Indication: HYPERTENSION
     Route: 048
  4. ERYTHROMYCIN [Concomitant]
     Route: 048
  5. TEMAZEPAM [Concomitant]
     Route: 048

REACTIONS (5)
  - CAUSTIC INJURY [None]
  - DEPRESSION [None]
  - DRUG INEFFECTIVE [None]
  - MULTIPLE DRUG OVERDOSE [None]
  - SUICIDE ATTEMPT [None]
